FAERS Safety Report 9518335 (Version 2)
Quarter: 2014Q1

REPORT INFORMATION
  Report Type: Spontaneous
  Country: GB (occurrence: None)
  Receive Date: 20130910
  Receipt Date: 20140205
  Transmission Date: 20141002
  Serious: Yes (Hospitalization, Other)
  Sender: FDA-Public Use
  Company Number: CO-OR-UK-2013-042

PATIENT
  Age: 7 Year
  Sex: Male

DRUGS (2)
  1. PREDNISOLONE [Suspect]
     Indication: CEREBRAL SARCOIDOSIS
  2. PHENYTOIN (PHENYTOIN SODIUM) [Concomitant]

REACTIONS (5)
  - General physical health deterioration [None]
  - Sarcoidosis [None]
  - Disease progression [None]
  - Partial seizures with secondary generalisation [None]
  - Cerebral sarcoidosis [None]
